FAERS Safety Report 24091274 (Version 4)
Quarter: 2024Q3

REPORT INFORMATION
  Report Type: Spontaneous
  Country: US (occurrence: US)
  Receive Date: 20240715
  Receipt Date: 20240917
  Transmission Date: 20241017
  Serious: No
  Sender: PFIZER
  Company Number: US-PFIZER INC-202400210043

PATIENT
  Age: 9 Year
  Sex: Male
  Weight: 28.8 kg

DRUGS (1)
  1. GENOTROPIN [Suspect]
     Active Substance: SOMATROPIN
     Indication: Silver-Russell syndrome
     Dosage: 1.2 MG, DAILY (7 DAYS PER WEEK )
     Route: 058

REACTIONS (2)
  - Device information output issue [Unknown]
  - Off label use [Unknown]
